FAERS Safety Report 20459943 (Version 2)
Quarter: 2022Q1

REPORT INFORMATION
  Report Type: Other
  Country: PA (occurrence: None)
  Receive Date: 20220211
  Receipt Date: 20220329
  Transmission Date: 20220424
  Serious: Yes (Other)
  Sender: FDA-Public Use
  Company Number: PA-ROCHE-3017360

PATIENT

DRUGS (1)
  1. TRASTUZUMAB [Suspect]
     Active Substance: TRASTUZUMAB
     Indication: Gastric cancer
     Route: 065

REACTIONS (2)
  - Disease progression [Unknown]
  - Drug ineffective [Unknown]
